FAERS Safety Report 6018104-9 (Version None)
Quarter: 2008Q4

REPORT INFORMATION
  Report Type: 
  Country: None (occurrence: None)
  Receive Date: 20081223
  Receipt Date: 20081216
  Transmission Date: 20090506
  Serious: Yes (Hospitalization, Other)
  Sender: FDA-Public Use
  Company Number: GB-JNJFOC-20081001243

PATIENT
  Age: 68 Year
  Sex: Female
  Weight: 78 kg

DRUGS (8)
  1. REMICADE [Suspect]
     Route: 042
  2. REMICADE [Suspect]
     Indication: RHEUMATOID ARTHRITIS
     Route: 042
  3. METHOTREXATE [Concomitant]
  4. FOLIC ACID [Concomitant]
  5. AZATHIOPRINE [Concomitant]
  6. LANSOPRAZOLE [Concomitant]
  7. CALCIUM [Concomitant]
  8. AMITRIPTYLINE [Concomitant]

REACTIONS (1)
  - LUNG ADENOCARCINOMA [None]
